FAERS Safety Report 8575245-X (Version None)
Quarter: 2012Q3

REPORT INFORMATION
  Report Type: 
  Country: None (occurrence: None)
  Receive Date: 20120807
  Receipt Date: 20120724
  Transmission Date: 20120928
  Serious: No
  Sender: FDA-Public Use
  Company Number: US-ROXANE LABORATORIES, INC.-2012-RO-01602RO

PATIENT
  Age: 61 Year
  Sex: Female

DRUGS (11)
  1. HUMIRA [Suspect]
     Indication: RHEUMATOID ARTHRITIS
     Dates: start: 20120409, end: 20120423
  2. HUMIRA [Suspect]
     Dates: start: 20120521
  3. LEFLUNOMIDE [Suspect]
     Dosage: 20 MG
     Route: 048
  4. VICODIN [Concomitant]
     Indication: PAIN
  5. MULTI-VITAMIN [Concomitant]
  6. CALCIUM [Concomitant]
  7. ERGOCALCIFEROL [Concomitant]
     Indication: SUPPLEMENTATION THERAPY
  8. ACETYLSALICYLIC ACID [Concomitant]
     Indication: PROPHYLAXIS
     Dosage: 81 MG
     Route: 048
  9. ALPRAZOLAM [Concomitant]
     Indication: ANXIETY
     Route: 048
  10. RAMIPRIL [Concomitant]
     Indication: HYPERTENSION
     Dosage: 20 MG
     Route: 048
  11. PREDNISONE [Suspect]

REACTIONS (4)
  - PALLOR [None]
  - FATIGUE [None]
  - OEDEMA PERIPHERAL [None]
  - EYELID OEDEMA [None]
